FAERS Safety Report 5247448-3 (Version None)
Quarter: 2007Q1

REPORT INFORMATION
  Report Type: 
  Country: None (occurrence: None)
  Receive Date: 20070220
  Receipt Date: 20070207
  Transmission Date: 20070707
  Serious: Yes (Hospitalization)
  Sender: FDA-Public Use
  Company Number: CLOF-10448

PATIENT
  Age: 39 Year
  Sex: Male

DRUGS (8)
  1. CLOFARABINE [Suspect]
     Indication: ACUTE LEUKAEMIA
     Dates: start: 20061023
  2. CLOFARABINE [Suspect]
     Indication: ACUTE LEUKAEMIA
     Dates: start: 20061228
  3. ACETAMINOPHEN [Concomitant]
  4. ALLPURINOL [Concomitant]
  5. VORICONAZOLE [Concomitant]
  6. CEFEPIME [Concomitant]
  7. AUGMENTIN [Concomitant]
  8. BACTRIM [Concomitant]

REACTIONS (4)
  - DISEASE PROGRESSION [None]
  - MALAISE [None]
  - NAUSEA [None]
  - PNEUMONIA FUNGAL [None]
